FAERS Safety Report 8043652-X (Version None)
Quarter: 2012Q1

REPORT INFORMATION
  Report Type: 
  Country: None (occurrence: None)
  Receive Date: 20120112
  Receipt Date: 20120104
  Transmission Date: 20120608
  Serious: Yes (Other)
  Sender: FDA-Public Use
  Company Number: US-ASTRAZENECA-2011SE01641

PATIENT
  Age: 81 Year
  Sex: Male

DRUGS (4)
  1. NEXIUM [Suspect]
     Route: 048
  2. SYMBICORT [Suspect]
     Dosage: 80/4.5 MCG TWO PUFFS TWO TIMES A DAY
     Route: 055
  3. TOPROL-XL [Suspect]
     Route: 048
  4. CRESTOR [Suspect]
     Route: 048

REACTIONS (8)
  - DRY MOUTH [None]
  - ASTHMA [None]
  - DRUG DOSE OMISSION [None]
  - PROSTATE CANCER [None]
  - NASOPHARYNGITIS [None]
  - DYSPNOEA [None]
  - HYPERTENSION [None]
  - CHRONIC OBSTRUCTIVE PULMONARY DISEASE [None]
